FAERS Safety Report 8932493 (Version 2)
Quarter: 2013Q1

REPORT INFORMATION
  Report Type: Spontaneous
  Country: BR (occurrence: None)
  Receive Date: 20121119
  Receipt Date: 20121204
  Transmission Date: 20140127
  Serious: Yes (Other)
  Sender: FDA-Public Use
  Company Number: BR12415594

PATIENT
  Age: 46 Year
  Sex: Male
  Weight: 79 kg

DRUGS (2)
  1. LYMECYCLINE [Suspect]
     Indication: ROSACEA
     Dosage: 300 MG (300 MG, 1 IN 1 DAYS), ORAL
     Route: 048
     Dates: start: 20120901
  2. ROZEX (METRONIDAZOLE) [Concomitant]
     Indication: ROSACEA
     Dosage: 1 DOSAGE FORMS, 1 DAYS), TOPICAL
     Route: 061
     Dates: start: 20120901

REACTIONS (1)
  - Neutropenia [None]
